FAERS Safety Report 5036655-0 (Version None)
Quarter: 2006Q2

REPORT INFORMATION
  Report Type: 
  Country: None (occurrence: None)
  Receive Date: 20060601
  Receipt Date: 20060404
  Transmission Date: 20061013
  Serious: No
  Sender: FDA-Public Use
  Company Number: US200604000734

PATIENT
  Age: 51 Year
  Sex: Male

DRUGS (4)
  1. CYMBALTA [Suspect]
     Indication: NEURALGIA
     Dosage: 30 MG, DAILY (1/D)
     Dates: start: 20060101, end: 20060301
  2. NORCO [Concomitant]
  3. AMBIEN [Concomitant]
  4. LIPITOR [Concomitant]

REACTIONS (8)
  - AGGRESSION [None]
  - BALANCE DISORDER [None]
  - BLOOD PRESSURE ORTHOSTATIC [None]
  - CHEST PAIN [None]
  - COORDINATION ABNORMAL [None]
  - DIZZINESS [None]
  - FLAT AFFECT [None]
  - SOMNOLENCE [None]
